FAERS Safety Report 8201829-4 (Version None)
Quarter: 2012Q1

REPORT INFORMATION
  Report Type: 
  Country: None (occurrence: None)
  Receive Date: 20120312
  Receipt Date: 20111209
  Transmission Date: 20120608
  Serious: Yes (Hospitalization)
  Sender: FDA-Public Use
  Company Number: DE-ROCHE-767985

PATIENT
  Sex: Female
  Weight: 78.4 kg

DRUGS (7)
  1. TACROLIMUS [Suspect]
     Indication: RENAL TRANSPLANT
     Dosage: LAST DOSE 7-JUL-2011
     Route: 048
  2. MYCOPHENOLATE MOFETIL (CELLCEPT) [Suspect]
     Indication: RENAL TRANSPLANT
     Dosage: LAST DOSE: 07-JUL-2011
     Route: 048
  3. TACROLIMUS [Suspect]
     Dosage: LAST DOSE 21-OCT-2011
     Route: 048
  4. PREDNISOLONE [Suspect]
     Route: 048
     Dates: start: 20110217
  5. MYCOPHENOLATE MOFETIL (CELLCEPT) [Suspect]
     Dosage: LAST DOSE: 26-JUN-2011
     Route: 048
  6. PREDNISOLONE [Suspect]
     Indication: RENAL TRANSPLANT
     Route: 048
     Dates: start: 20110212
  7. ANTI-THYMOCYTE GLOBULIN EQUINE NOS [Suspect]
     Indication: RENAL TRANSPLANT
     Route: 042

REACTIONS (3)
  - CYTOMEGALOVIRUS INFECTION [None]
  - DYSPNOEA [None]
  - TRANSPLANT REJECTION [None]
